FAERS Safety Report 12478364 (Version 1)
Quarter: 2016Q2

REPORT INFORMATION
  Report Type: Spontaneous
  Country: US (occurrence: US)
  Receive Date: 20160618
  Receipt Date: 20160618
  Transmission Date: 20160815
  Serious: No
  Sender: FDA-Public Use
  Company Number: US-009507513-1606USA006038

PATIENT

DRUGS (1)
  1. ANTIVENIN [Suspect]
     Active Substance: BLACK WIDOW SPIDER (LATRODECTUS MACTANS) IMMUNE GLOBULIN ANTIVENIN (EQUINE)
     Dosage: UNK

REACTIONS (3)
  - Intercepted medication error [Unknown]
  - Product preparation error [Unknown]
  - Drug dose omission [Unknown]

NARRATIVE: CASE EVENT DATE: 20160610
